FAERS Safety Report 6762909-3 (Version None)
Quarter: 2010Q2

REPORT INFORMATION
  Report Type: 
  Country: None (occurrence: None)
  Receive Date: 20100609
  Receipt Date: 20100605
  Transmission Date: 20101027
  Serious: Yes (Death)
  Sender: FDA-Public Use
  Company Number: JP-ASTRAZENECA-2010SE26347

PATIENT
  Age: 76 Year
  Sex: Female
  Weight: 43 kg

DRUGS (4)
  1. ECARD [Suspect]
     Indication: HYPERTENSION
     Route: 048
     Dates: start: 20090417
  2. LOSARTAN POTASSIUM AND HYDROCHLOROTHIAZIDE [Concomitant]
     Indication: HYPERTENSION
     Route: 048
     Dates: start: 20080202, end: 20090417
  3. TOWARAT CR [Concomitant]
     Indication: HYPERTENSION
     Route: 048
     Dates: start: 20080202, end: 20080928
  4. SELARA [Concomitant]
     Indication: HYPERTENSION
     Route: 048
     Dates: start: 20080202, end: 20090928

REACTIONS (1)
  - SUDDEN DEATH [None]
